FAERS Safety Report 8935911 (Version 1)
Quarter: 2012Q4

REPORT INFORMATION
  Report Type: 
  Country: US (occurrence: US)
  Receive Date: 20121130
  Receipt Date: 20121130
  Transmission Date: 20130627
  Serious: No
  Sender: FDA-Public Use
  Company Number: US-ABBOTT-12P-163-0993014-00

PATIENT
  Age: 84 Year
  Sex: Male

DRUGS (2)
  1. ANDROGEL [Suspect]
     Indication: BLOOD TESTOSTERONE DECREASED
     Dosage: 2 pumps
     Route: 061
     Dates: start: 201204, end: 20120925
  2. ANDROGEL [Suspect]
     Dosage: 4 pumps
     Route: 061
     Dates: start: 201201, end: 201204

REACTIONS (2)
  - Blood testosterone abnormal [Not Recovered/Not Resolved]
  - Blood testosterone abnormal [Unknown]
